FAERS Safety Report 15437753 (Version 1)
Quarter: 2018Q3

REPORT INFORMATION
  Report Type: Spontaneous
  Country: US (occurrence: US)
  Receive Date: 20180927
  Receipt Date: 20180927
  Transmission Date: 20181010
  Serious: Yes (Hospitalization)
  Sender: FDA-Public Use
  Company Number: US-LUNDBECK-DKLU2052248

PATIENT
  Sex: Male

DRUGS (1)
  1. NORTHERA [Suspect]
     Active Substance: DROXIDOPA
     Indication: CHRONIC KIDNEY DISEASE
     Route: 065

REACTIONS (4)
  - Staphylococcal infection [Unknown]
  - Blood pressure decreased [Unknown]
  - Pyrexia [Unknown]
  - Drug dose omission [Unknown]
